FAERS Safety Report 16302860 (Version 1)
Quarter: 2019Q2

REPORT INFORMATION
  Report Type: Spontaneous
  Country: US (occurrence: US)
  Receive Date: 20190513
  Receipt Date: 20190513
  Transmission Date: 20190711
  Serious: Yes (Disabling, Other)
  Sender: FDA-Public Use
  Company Number: US-SA-2019SA125968

PATIENT
  Sex: Male

DRUGS (2)
  1. CORTIZONE 10 [Suspect]
     Active Substance: HYDROCORTISONE
     Dosage: UNK
  2. PROTOPIC [Suspect]
     Active Substance: TACROLIMUS

REACTIONS (7)
  - Electrolyte depletion [Unknown]
  - Food allergy [Unknown]
  - Skin striae [Unknown]
  - Back disorder [Unknown]
  - Growth retardation [Unknown]
  - Wheelchair user [Unknown]
  - Asthma [Unknown]
